FAERS Safety Report 8854091 (Version 1)
Quarter: 2012Q4

REPORT INFORMATION
  Report Type: Spontaneous
  Country: US (occurrence: None)
  Receive Date: 20121019
  Receipt Date: 20121019
  Transmission Date: 20130627
  Serious: No
  Sender: FDA-Public Use
  Company Number: None

PATIENT
  Age: 51 Year
  Sex: Female
  Weight: 68.2 kg

DRUGS (2)
  1. INFUVITE ADULT [Suspect]
     Indication: OVARIAN CANCER
     Dosage: 5 cc
     Route: 040
  2. INFUVITE ADULT [Suspect]
     Indication: CHEMOTHERAPY
     Dosage: 5 cc
     Route: 040

REACTIONS (3)
  - Throat tightness [None]
  - Hypoaesthesia oral [None]
  - Infusion related reaction [None]
